FAERS Safety Report 7514058-4 (Version None)
Quarter: 2011Q2

REPORT INFORMATION
  Report Type: 
  Country: None (occurrence: None)
  Receive Date: 20110531
  Receipt Date: 20100329
  Transmission Date: 20111010
  Serious: No
  Sender: FDA-Public Use
  Company Number: US-BAYER-201017871NA

PATIENT
  Age: 32 Year
  Sex: Female

DRUGS (3)
  1. AVELOX [Suspect]
     Indication: PRODUCT USED FOR UNKNOWN INDICATION
  2. MUCINEX [Concomitant]
  3. AN INHALER [Concomitant]
     Indication: ASTHMA

REACTIONS (2)
  - PALPITATIONS [None]
  - FEELING ABNORMAL [None]
